FAERS Safety Report 21674371 (Version 9)
Quarter: 2023Q2

REPORT INFORMATION
  Report Type: Spontaneous
  Country: CA (occurrence: CA)
  Receive Date: 20221202
  Receipt Date: 20230512
  Transmission Date: 20230722
  Serious: Yes (Life-Threatening, Hospitalization, Disabling, Other)
  Sender: FDA-Public Use
  Company Number: CA-ROCHE-2619878

PATIENT
  Age: 44 Year
  Sex: Female
  Weight: 97 kg

DRUGS (253)
  1. FOSAMAX [Suspect]
     Active Substance: ALENDRONATE SODIUM
     Indication: Rheumatoid arthritis
     Dosage: UNK
     Route: 048
  2. FOSAMAX [Suspect]
     Active Substance: ALENDRONATE SODIUM
     Dosage: UNK
     Route: 048
  3. FOSAMAX [Suspect]
     Active Substance: ALENDRONATE SODIUM
     Dosage: UNK
     Route: 065
  4. FOSAVANCE [Suspect]
     Active Substance: ALENDRONATE SODIUM\CHOLECALCIFEROL
     Indication: Rheumatoid arthritis
     Dosage: UNK
     Route: 048
  5. FOSAVANCE [Suspect]
     Active Substance: ALENDRONATE SODIUM\CHOLECALCIFEROL
     Indication: Product used for unknown indication
     Dosage: DOSAGE FORM: UNKNOWN
     Route: 065
  6. REMICADE [Suspect]
     Active Substance: INFLIXIMAB
     Indication: Rheumatoid arthritis
     Dosage: POWDER FOR SOLUTION INTRAVENOUS
     Route: 042
  7. REMICADE [Suspect]
     Active Substance: INFLIXIMAB
     Indication: Psoriatic arthropathy
     Dosage: 500 MILLIGRAM, CYCLICAL (DOSAGE FORM: NOT SPECIFIED)
     Route: 042
  8. REMICADE [Suspect]
     Active Substance: INFLIXIMAB
     Indication: Crohn^s disease
     Dosage: 500 MILLIGRAM, POWDER FOR SOLUTION INTRAVENOUS
     Route: 042
  9. REMICADE [Suspect]
     Active Substance: INFLIXIMAB
     Indication: Ankylosing spondylitis
  10. SIMPONI [Suspect]
     Active Substance: GOLIMUMAB
     Indication: Rheumatoid arthritis
     Dosage: UNK, FORMULATION: SOLUTION SUBCUTANEOUS, SUBCUTANEOUS
     Route: 058
  11. PLAQUENIL [Suspect]
     Active Substance: HYDROXYCHLOROQUINE SULFATE
     Indication: Rheumatoid arthritis
     Dosage: 400 MILLIGRAM, QD
     Route: 048
  12. PLAQUENIL [Suspect]
     Active Substance: HYDROXYCHLOROQUINE SULFATE
     Indication: Product used for unknown indication
     Dosage: UNK
     Route: 048
  13. PLAQUENIL [Suspect]
     Active Substance: HYDROXYCHLOROQUINE SULFATE
     Dosage: 400 MILLIGRAM, QD DOSAGE FORM NOT SPECIFIED
     Route: 048
  14. PLAQUENIL [Suspect]
     Active Substance: HYDROXYCHLOROQUINE SULFATE
     Dosage: UNK (DOSAGE FORM:: NOT SPECIFIED)
     Route: 048
  15. PLAQUENIL [Suspect]
     Active Substance: HYDROXYCHLOROQUINE SULFATE
     Dosage: 40 MILLIGRAM, QD
     Route: 048
  16. PLAQUENIL [Suspect]
     Active Substance: HYDROXYCHLOROQUINE SULFATE
     Dosage: 400 MILLIGRAM, QD
     Route: 048
  17. PLAQUENIL [Suspect]
     Active Substance: HYDROXYCHLOROQUINE SULFATE
     Dosage: 400 MILLIGRAM (DOSAGE FORM: NOT SPECIFIED)
     Route: 048
  18. PLAQUENIL [Suspect]
     Active Substance: HYDROXYCHLOROQUINE SULFATE
     Dosage: UNK
     Route: 065
  19. PLAQUENIL [Suspect]
     Active Substance: HYDROXYCHLOROQUINE SULFATE
     Dosage: UNK
     Route: 065
  20. PLAQUENIL [Suspect]
     Active Substance: HYDROXYCHLOROQUINE SULFATE
     Dosage: 4000 MILLILITER, 1 EVERY 1 DAY
     Route: 065
  21. PLAQUENIL [Suspect]
     Active Substance: HYDROXYCHLOROQUINE SULFATE
     Dosage: 400 MILLIGRAM
     Route: 048
  22. PLAQUENIL [Suspect]
     Active Substance: HYDROXYCHLOROQUINE SULFATE
     Dosage: 200 MILLIGRAM, 2 EVERY 1 DAY
     Route: 065
  23. PLAQUENIL [Suspect]
     Active Substance: HYDROXYCHLOROQUINE SULFATE
     Dosage: 4000 MILLILITER,
     Route: 065
  24. PLAQUENIL [Suspect]
     Active Substance: HYDROXYCHLOROQUINE SULFATE
     Dosage: 400 MILLIGRAM
     Route: 065
  25. PLAQUENIL [Suspect]
     Active Substance: HYDROXYCHLOROQUINE SULFATE
     Dosage: 500 MILLIGRAM 1 EVERY 1 DAYS DOSAGE FORM NOT SPECIFIED
     Route: 048
  26. XELJANZ [Suspect]
     Active Substance: TOFACITINIB CITRATE
     Indication: Rheumatoid arthritis
     Dosage: 5 MILLIGRAM, Q12H (0.5 DAY)
     Route: 065
  27. XELJANZ [Suspect]
     Active Substance: TOFACITINIB CITRATE
     Indication: Product used for unknown indication
     Dosage: 5 MILLIGRAM, QOD
     Route: 065
  28. XELJANZ [Suspect]
     Active Substance: TOFACITINIB CITRATE
     Dosage: UNK (DOSAGE FORM: NOT SPECIFIED)
     Route: 065
  29. XELJANZ [Suspect]
     Active Substance: TOFACITINIB CITRATE
     Dosage: 10 MILLIGRAM, 1 EVERY 1 DAY, DOSAGE FORM NOT SPECIFIED
     Route: 065
  30. XELJANZ [Suspect]
     Active Substance: TOFACITINIB CITRATE
     Dosage: 10 MILLIGRAM (DOSAGE FORM: NOT SPECIFIED)
     Route: 065
  31. XELJANZ [Suspect]
     Active Substance: TOFACITINIB CITRATE
     Dosage: 5 MILLIGRAM
     Route: 065
  32. XELJANZ [Suspect]
     Active Substance: TOFACITINIB CITRATE
     Dosage: 5 MILLIGRAM
     Route: 065
  33. XELJANZ [Suspect]
     Active Substance: TOFACITINIB CITRATE
     Dosage: 5 MILLIGRAM, DOSAGE FORM NOT SPECIFIED
     Route: 065
  34. XELJANZ [Suspect]
     Active Substance: TOFACITINIB CITRATE
     Dosage: 10 MILLIGRAM
     Route: 065
  35. XELJANZ [Suspect]
     Active Substance: TOFACITINIB CITRATE
     Dosage: 5 MILLIGRAM, BID
     Route: 065
  36. XELJANZ [Suspect]
     Active Substance: TOFACITINIB CITRATE
     Dosage: 5 MILLIGRAM, BID (2 EVERY 1 DAYS), DOSAGE FORM: NOT SPECIFIED
     Route: 065
  37. XELJANZ [Suspect]
     Active Substance: TOFACITINIB CITRATE
     Dosage: 10 GRAM, 1 EVERY 1 DAY
     Route: 048
  38. XELJANZ [Suspect]
     Active Substance: TOFACITINIB CITRATE
     Dosage: 10 MILLIGRAM, DOSAGE FORM NOT SPECIFIED
     Route: 048
  39. XELJANZ [Suspect]
     Active Substance: TOFACITINIB CITRATE
     Dosage: 10 GRAM DOSAGE FORM NOT SPECIFIED
     Route: 048
  40. ORENCIA [Suspect]
     Active Substance: ABATACEPT
     Indication: Rheumatoid arthritis
     Dosage: UNK (DOSAGE FORM:: NOT SPECIFIED)
     Route: 042
  41. ORENCIA [Suspect]
     Active Substance: ABATACEPT
     Dosage: UNK
     Route: 058
  42. ORENCIA [Suspect]
     Active Substance: ABATACEPT
     Dosage: 125 MILLIGRAM
     Route: 058
  43. ORENCIA [Suspect]
     Active Substance: ABATACEPT
     Dosage: UNK
     Route: 015
  44. ORENCIA [Suspect]
     Active Substance: ABATACEPT
     Dosage: UNK
     Route: 065
  45. PHTHALYLSULFATHIAZOLE [Suspect]
     Active Substance: PHTHALYLSULFATHIAZOLE
     Indication: Rheumatoid arthritis
     Dosage: 1000 MILLIGRAM
     Route: 048
  46. PHTHALYLSULFATHIAZOLE [Suspect]
     Active Substance: PHTHALYLSULFATHIAZOLE
     Dosage: 2000 MILLIGRAM
     Route: 048
  47. PHTHALYLSULFATHIAZOLE [Suspect]
     Active Substance: PHTHALYLSULFATHIAZOLE
     Dosage: 5000 MILLIGRAM
     Route: 048
  48. PHTHALYLSULFATHIAZOLE [Suspect]
     Active Substance: PHTHALYLSULFATHIAZOLE
     Dosage: UNK
     Route: 065
  49. PHTHALYLSULFATHIAZOLE [Suspect]
     Active Substance: PHTHALYLSULFATHIAZOLE
     Dosage: 1000 MILLIGRAM, BID (2 EVERY 1 DAYS)
     Route: 048
  50. PHTHALYLSULFATHIAZOLE [Suspect]
     Active Substance: PHTHALYLSULFATHIAZOLE
     Dosage: 400 MILLIGRAM
     Route: 065
  51. PHTHALYLSULFATHIAZOLE [Suspect]
     Active Substance: PHTHALYLSULFATHIAZOLE
     Dosage: 500 MILLIGRAM
     Route: 048
  52. PHTHALYLSULFATHIAZOLE [Suspect]
     Active Substance: PHTHALYLSULFATHIAZOLE
     Dosage: 500 MILLIGRAM
     Route: 048
  53. PHTHALYLSULFATHIAZOLE [Suspect]
     Active Substance: PHTHALYLSULFATHIAZOLE
     Dosage: 500 MILLIGRAM, DOSAGE FORM NOT SPECIFIED
     Route: 065
  54. PHTHALYLSULFATHIAZOLE [Suspect]
     Active Substance: PHTHALYLSULFATHIAZOLE
     Dosage: 5000 MILLIGRAM,DOSAGE FORM NOT SPECIFIED
     Route: 065
  55. PHTHALYLSULFATHIAZOLE [Suspect]
     Active Substance: PHTHALYLSULFATHIAZOLE
     Dosage: 2000 MILLIGRAM, 1 EVERY 1 DAYS DOSAGE FORM NOT SPECIFIED
     Route: 048
  56. PHTHALYLSULFATHIAZOLE [Suspect]
     Active Substance: PHTHALYLSULFATHIAZOLE
     Dosage: UNK
     Route: 048
  57. FOLIC ACID [Suspect]
     Active Substance: FOLIC ACID
     Indication: Rheumatoid arthritis
     Dosage: DOSAGE FORM: NOT SPECIFIED, 5 MILLIGRAM
     Route: 065
  58. FOLIC ACID [Suspect]
     Active Substance: FOLIC ACID
     Indication: Product used for unknown indication
     Dosage: DOSAGE FORM: NOT SPECIFIED, 1 MILLIGRAM
     Route: 065
  59. FOLIC ACID [Suspect]
     Active Substance: FOLIC ACID
     Dosage: DOSAGE FORM: NOT SPECIFIED, 1 MILLIGRAM
     Route: 065
  60. FOLIC ACID [Suspect]
     Active Substance: FOLIC ACID
     Dosage: DOSAGE FORM: NOT SPECIFIED, 1 MILLIGRAM
     Route: 065
  61. FOLIC ACID [Suspect]
     Active Substance: FOLIC ACID
     Dosage: DOSAGE FORM: NOT SPECIFIED, 1 MILLIGRAM
     Route: 065
  62. FOLIC ACID [Suspect]
     Active Substance: FOLIC ACID
     Dosage: DOSAGE FORM: NOT SPECIFIED
     Route: 065
  63. FOLIC ACID [Suspect]
     Active Substance: FOLIC ACID
     Dosage: 1 MILLIGRAM, DOSAGE FORM: NOT SPECIFIED
     Route: 065
  64. FOLIC ACID [Suspect]
     Active Substance: FOLIC ACID
     Dosage: 5 MILLIGRAM
     Route: 065
  65. PSEUDOEPHEDRINE HYDROCHLORIDE [Suspect]
     Active Substance: PSEUDOEPHEDRINE HYDROCHLORIDE
     Indication: Rheumatoid arthritis
     Dosage: 10 MILLIGRAM
     Route: 065
  66. PSEUDOEPHEDRINE HYDROCHLORIDE [Suspect]
     Active Substance: PSEUDOEPHEDRINE HYDROCHLORIDE
     Indication: Product used for unknown indication
     Dosage: UNK (DOSAGE FORM: NOT SPECIFIED)
     Route: 065
  67. PSEUDOEPHEDRINE HYDROCHLORIDE [Suspect]
     Active Substance: PSEUDOEPHEDRINE HYDROCHLORIDE
     Dosage: UNK
     Route: 065
  68. PREDNISONE [Suspect]
     Active Substance: PREDNISONE
     Indication: Product used for unknown indication
     Dosage: DOSAGE FORM: NOT SPECIFIED
     Route: 048
  69. PREDNISONE [Suspect]
     Active Substance: PREDNISONE
     Dosage: 7.5 MILLIGRAM DOSAGE FORM: NOT SPECIFIED
     Route: 048
  70. PREDNISONE [Suspect]
     Active Substance: PREDNISONE
     Dosage: UNK (DOSAGE FORM: NOT SPECIFIED)
     Route: 065
  71. PREDNISONE [Suspect]
     Active Substance: PREDNISONE
     Dosage: 200 MILLIGRAM, DOSAGE FORM: NOT SPECIFIED
     Route: 048
  72. PREDNISONE [Suspect]
     Active Substance: PREDNISONE
     Dosage: UNK DOSAGE FORM NOT SPECIFIED
     Route: 042
  73. METHOTREXATE SODIUM [Suspect]
     Active Substance: METHOTREXATE SODIUM
     Indication: Product used for unknown indication
     Dosage: 20 MILLIGRAM, DOSAGE FORM: NOT SPECIFIED
     Route: 048
  74. METHOTREXATE SODIUM [Suspect]
     Active Substance: METHOTREXATE SODIUM
     Indication: Rheumatoid arthritis
     Dosage: 25 MILLIGRAM, DOSAGE FORM: NOT SPECIFIED
     Route: 048
  75. METHOTREXATE SODIUM [Suspect]
     Active Substance: METHOTREXATE SODIUM
     Dosage: 200 MILLIGRAM, DOSAGE FORM: NOT SPECIFIED
     Route: 048
  76. METHOTREXATE SODIUM [Suspect]
     Active Substance: METHOTREXATE SODIUM
     Dosage: 25 MILLIGRAM, DOSAGE FORM: NOT SPECIFIED
     Route: 058
  77. METHOTREXATE SODIUM [Suspect]
     Active Substance: METHOTREXATE SODIUM
     Dosage: UNK
     Route: 065
  78. METHOTREXATE SODIUM [Suspect]
     Active Substance: METHOTREXATE SODIUM
     Dosage: UNK
     Route: 048
  79. METHOTREXATE SODIUM [Suspect]
     Active Substance: METHOTREXATE SODIUM
     Dosage: 20 MILLIGRAM 1 EVERY 1 DAY (1 EVERY 24 HOURS), DOSAGE FORM: NOT SPECIFIED
     Route: 048
  80. METHOTREXATE SODIUM [Suspect]
     Active Substance: METHOTREXATE SODIUM
     Dosage: 20 MILLIGRAM, 1 EVERY 1 WEEK DOSAGE FORM: NOT SPECIFIED
     Route: 048
  81. METHOTREXATE SODIUM [Suspect]
     Active Substance: METHOTREXATE SODIUM
     Dosage: 25 MILLIGRAM, DOSAGE FORM: NOT SPECIFIED
     Route: 048
  82. METHOTREXATE SODIUM [Suspect]
     Active Substance: METHOTREXATE SODIUM
     Dosage: UNK, DOSAGE FORM NOT SPECIFIED
     Route: 048
  83. METHOTREXATE SODIUM [Suspect]
     Active Substance: METHOTREXATE SODIUM
     Dosage: 25 MILLIGRAM, DOSAGE FORM: NOT SPECIFIED
     Route: 013
  84. METHOTREXATE SODIUM [Suspect]
     Active Substance: METHOTREXATE SODIUM
     Dosage: UNK, DOSAGE FORM NOT SPECIFIED
     Route: 058
  85. TOPICORT [Suspect]
     Active Substance: DESOXIMETASONE
     Indication: Rheumatoid arthritis
     Dosage: DOSAGE FORM: NOT SPECIFIED
     Route: 048
  86. TOPICORT [Suspect]
     Active Substance: DESOXIMETASONE
     Indication: Product used for unknown indication
     Dosage: DOSAGE FORM: NOT SPECIFIED
     Route: 003
  87. TOPICORT [Suspect]
     Active Substance: DESOXIMETASONE
     Dosage: DOSAGE FORM: NOT SPECIFIED
     Route: 058
  88. TOPICORT [Suspect]
     Active Substance: DESOXIMETASONE
     Dosage: DOSAGE FORM: NOT SPECIFIED
     Route: 061
  89. TOPICORT [Suspect]
     Active Substance: DESOXIMETASONE
     Dosage: DOSAGE FORM: NOT SPECIFIED
     Route: 048
  90. TOPICORT [Suspect]
     Active Substance: DESOXIMETASONE
     Dosage: DOSAGE FORM: NOT SPECIFIED
     Route: 065
  91. CETIRIZINE [Suspect]
     Active Substance: CETIRIZINE HYDROCHLORIDE
     Indication: Rheumatoid arthritis
     Dosage: 10 MILLIGRAM
     Route: 065
  92. CETIRIZINE [Suspect]
     Active Substance: CETIRIZINE HYDROCHLORIDE
     Indication: Off label use
     Dosage: UNK
     Route: 065
  93. CETIRIZINE [Suspect]
     Active Substance: CETIRIZINE HYDROCHLORIDE
     Dosage: 10 MILLIGRAM
     Route: 048
  94. CETIRIZINE [Suspect]
     Active Substance: CETIRIZINE HYDROCHLORIDE
     Dosage: UNK
     Route: 065
  95. CETIRIZINE [Suspect]
     Active Substance: CETIRIZINE HYDROCHLORIDE
     Dosage: UNK
     Route: 065
  96. CETIRIZINE HYDROCHLORIDE [Suspect]
     Active Substance: CETIRIZINE HYDROCHLORIDE
     Indication: Product used for unknown indication
     Dosage: 10 MILLIGRAM, DOSAGE FORM: NOT SPECIFIED
     Route: 065
  97. CETIRIZINE HYDROCHLORIDE [Suspect]
     Active Substance: CETIRIZINE HYDROCHLORIDE
     Indication: Rheumatoid arthritis
     Dosage: 10 MILLIGRAM
     Route: 065
  98. CETIRIZINE HYDROCHLORIDE [Suspect]
     Active Substance: CETIRIZINE HYDROCHLORIDE
     Dosage: UNK
     Route: 065
  99. CETIRIZINE HYDROCHLORIDE [Suspect]
     Active Substance: CETIRIZINE HYDROCHLORIDE
     Dosage: 10 MILLIGRAM
     Route: 005
  100. CETIRIZINE HYDROCHLORIDE [Suspect]
     Active Substance: CETIRIZINE HYDROCHLORIDE
     Dosage: 10 MILLIGRAM
     Route: 065
  101. CETIRIZINE HYDROCHLORIDE [Suspect]
     Active Substance: CETIRIZINE HYDROCHLORIDE
     Dosage: UNK
     Route: 065
  102. DICLOFENAC SODIUM [Suspect]
     Active Substance: DICLOFENAC SODIUM
     Indication: Product used for unknown indication
     Dosage: UNK (DOSAGE FORM: NOT SPECIFIED)
     Route: 016
  103. DICLOFENAC SODIUM [Suspect]
     Active Substance: DICLOFENAC SODIUM
     Indication: Rheumatoid arthritis
     Dosage: UNK (DOSAGE FORM: SOLUTION OPHTHALMIC)
     Route: 047
  104. DICLOFENAC SODIUM [Suspect]
     Active Substance: DICLOFENAC SODIUM
     Dosage: UNK
     Route: 065
  105. DICLOFENAC SODIUM [Suspect]
     Active Substance: DICLOFENAC SODIUM
     Dosage: UNK
     Route: 047
  106. CORTISONE ACETATE [Suspect]
     Active Substance: CORTISONE ACETATE
     Indication: Rheumatoid arthritis
     Dosage: 25 MILLIGRAM
     Route: 061
  107. CORTISONE ACETATE [Suspect]
     Active Substance: CORTISONE ACETATE
     Indication: Product used for unknown indication
     Dosage: 25 MILLIGRAM, DOSAGE FORM: NOT SPECIFIED
     Route: 061
  108. CORTISONE ACETATE [Suspect]
     Active Substance: CORTISONE ACETATE
     Dosage: DOSAGE FORM NOT SPECIFIED
     Route: 061
  109. CORTISONE ACETATE [Suspect]
     Active Substance: CORTISONE ACETATE
     Dosage: UNK
     Route: 058
  110. CORTISONE ACETATE [Suspect]
     Active Substance: CORTISONE ACETATE
     Dosage: 25 MILLIGRAM
     Route: 065
  111. ENBREL [Suspect]
     Active Substance: ETANERCEPT
     Indication: Rheumatoid arthritis
     Dosage: UNK
     Route: 058
  112. ENBREL [Suspect]
     Active Substance: ETANERCEPT
     Indication: Product used for unknown indication
     Dosage: 20 MILLIGRAM
     Route: 058
  113. ENBREL [Suspect]
     Active Substance: ETANERCEPT
     Dosage: UNK
     Route: 058
  114. ENBREL [Suspect]
     Active Substance: ETANERCEPT
     Dosage: UNK
     Route: 065
  115. ENBREL [Suspect]
     Active Substance: ETANERCEPT
     Dosage: 50 MILLIGRAM, 1 EVERY 2 WEEKS
     Route: 058
  116. ARAVA [Suspect]
     Active Substance: LEFLUNOMIDE
     Indication: Rheumatoid arthritis
     Dosage: UNK (DOSAGE FORM: NOT SPECIFIED)
     Route: 048
  117. ARAVA [Suspect]
     Active Substance: LEFLUNOMIDE
     Indication: Product used for unknown indication
     Dosage: DOSAGE FORM: NOT SPECIFIED
     Route: 065
  118. ARAVA [Suspect]
     Active Substance: LEFLUNOMIDE
     Dosage: 20 MILLIGRAM
     Route: 048
  119. ARAVA [Suspect]
     Active Substance: LEFLUNOMIDE
     Dosage: UNK (DOSAGE FORM: NOT SPECIFIED)
     Route: 048
  120. ARAVA [Suspect]
     Active Substance: LEFLUNOMIDE
     Dosage: 2000 MILLIGRAM
     Route: 048
  121. ARAVA [Suspect]
     Active Substance: LEFLUNOMIDE
     Dosage: 2000 MILLIGRAM, 1 EVERY 1 DAYS (QD)
     Route: 048
  122. ARAVA [Suspect]
     Active Substance: LEFLUNOMIDE
     Dosage: 20 MILLIGRAM, 1 EVERY 1DAYS (QD)
     Route: 048
  123. HUMIRA [Suspect]
     Active Substance: ADALIMUMAB
     Indication: Rheumatoid arthritis
     Dosage: DOSAGE FORM SOLUTION SUBCUTANEOUS, 40 MILLIGRAM
     Route: 058
  124. HUMIRA [Suspect]
     Active Substance: ADALIMUMAB
     Dosage: UNK (DOSAGE FORM: NOT SPECIFIED)
     Route: 058
  125. ACTEMRA [Suspect]
     Active Substance: TOCILIZUMAB
     Indication: Rheumatoid arthritis
     Dosage: DOSAGE FORM: NOT SPECIFIED
     Route: 042
  126. ACTEMRA [Suspect]
     Active Substance: TOCILIZUMAB
     Indication: Product used for unknown indication
     Dosage: DOSAGE FORM: NOT SPECIFIED
     Route: 065
  127. ACTEMRA [Suspect]
     Active Substance: TOCILIZUMAB
     Dosage: 752.8 MILLIGRAM (DOSAGE FORM: NOT SPECIFIED)
     Route: 042
  128. ACTEMRA [Suspect]
     Active Substance: TOCILIZUMAB
     Dosage: DOSAGE FORM: NOT SPECIFIED
     Route: 058
  129. ACTEMRA [Suspect]
     Active Substance: TOCILIZUMAB
     Dosage: 728 MILLIGRAM,  DOSAGE FORM: NOT SPECIFIED
     Route: 058
  130. ACTEMRA [Suspect]
     Active Substance: TOCILIZUMAB
     Dosage: 3011.2 MILLIGRAM (DOSAGE FORM: NOT SPECIFIED)
     Route: 042
  131. ACTEMRA [Suspect]
     Active Substance: TOCILIZUMAB
     Dosage: 728 MILLIGRAM
     Route: 042
  132. ACTEMRA [Suspect]
     Active Substance: TOCILIZUMAB
     Dosage: 2912 MILLIGRAM, DOSAGE FORM: NOT SPECIFIED
     Route: 042
  133. ACTEMRA [Suspect]
     Active Substance: TOCILIZUMAB
     Dosage: 785.8 MILLIGRAM, DOSAGE FORM: NOT SPECIFIED
     Route: 042
  134. ACTEMRA [Suspect]
     Active Substance: TOCILIZUMAB
     Dosage: 20.0 MILLIGRAM
     Route: 048
  135. ACTEMRA [Suspect]
     Active Substance: TOCILIZUMAB
     Dosage: DOSAGE FORM: NOT SPECIFIED
     Route: 061
  136. ACTEMRA [Suspect]
     Active Substance: TOCILIZUMAB
     Dosage: 2912 MILLIGRAM
     Route: 065
  137. ACTEMRA [Suspect]
     Active Substance: TOCILIZUMAB
     Dosage: 752 MILLIGRAM
     Route: 065
  138. ACTEMRA [Suspect]
     Active Substance: TOCILIZUMAB
     Dosage: 752 MILLIGRAM
     Route: 042
  139. ACTEMRA [Suspect]
     Active Substance: TOCILIZUMAB
     Dosage: 3011.2 MILLIGRAM 1 EVERY 1 WEEKS (QW)
     Route: 042
  140. ACTEMRA [Suspect]
     Active Substance: TOCILIZUMAB
     Dosage: 752.8 MILLIGRAM 1 EVERY 1 WEEKS (QW)
     Route: 042
  141. ACTEMRA [Suspect]
     Active Substance: TOCILIZUMAB
     Dosage: 752.8 MILLIGRAM 1 EVERY 1 WEEKS (QW)
     Route: 042
  142. ACTEMRA [Suspect]
     Active Substance: TOCILIZUMAB
     Dosage: 728 MILLIGRAM, 1 EVERY 1 WEEKS (QW)
     Route: 065
  143. ACTEMRA [Suspect]
     Active Substance: TOCILIZUMAB
     Dosage: UNK
     Route: 058
  144. ACTEMRA [Suspect]
     Active Substance: TOCILIZUMAB
     Dosage: 752 GRAM
     Route: 042
  145. ACTEMRA [Suspect]
     Active Substance: TOCILIZUMAB
     Indication: Rheumatoid arthritis
     Dosage: DOSAGE FORM: SOLUTION FOR INJECTION IN PRE-FILLED SYRINGE.
     Route: 058
  146. RITUXAN [Suspect]
     Active Substance: RITUXIMAB
     Indication: Rheumatoid arthritis
     Dosage: UNK, SOLUTION INTRAVENOUS
     Route: 042
  147. RITUXAN [Suspect]
     Active Substance: RITUXIMAB
     Dosage: UNK (DOSAGE FORM: NOT SPECIFIED)
     Route: 042
  148. RITUXAN [Suspect]
     Active Substance: RITUXIMAB
     Dosage: UNK, ROUTE: INTRAVENOUS (NOT OTHERWISE SPECIFIED)
     Route: 042
  149. CLIOQUINOL\FLUMETHASONE PIVALATE [Suspect]
     Active Substance: CLIOQUINOL\FLUMETHASONE PIVALATE
     Indication: Product used for unknown indication
     Dosage: UNK
     Route: 003
  150. CIMZIA [Suspect]
     Active Substance: CERTOLIZUMAB PEGOL
     Indication: Rheumatoid arthritis
     Dosage: UNK
     Route: 058
  151. CIMZIA [Suspect]
     Active Substance: CERTOLIZUMAB PEGOL
     Indication: Product used for unknown indication
     Dosage: UNK
     Route: 065
  152. CIMZIA [Suspect]
     Active Substance: CERTOLIZUMAB PEGOL
     Indication: Psoriasis
     Dosage: UNK
     Route: 065
  153. CIMZIA [Suspect]
     Active Substance: CERTOLIZUMAB PEGOL
     Dosage: UNK
     Route: 058
  154. CIMZIA [Suspect]
     Active Substance: CERTOLIZUMAB PEGOL
     Dosage: UNK
     Route: 058
  155. ACETAMINOPHEN [Suspect]
     Active Substance: ACETAMINOPHEN
     Indication: Product used for unknown indication
     Dosage: UNK; DOSAGE FORM: NOT SPECIFIED
     Route: 065
  156. ACETAMINOPHEN [Suspect]
     Active Substance: ACETAMINOPHEN
     Dosage: 10 MILLIGRAM
     Route: 065
  157. ACETAMINOPHEN [Suspect]
     Active Substance: ACETAMINOPHEN
     Dosage: UNK
     Route: 065
  158. ACETAMINOPHEN [Suspect]
     Active Substance: ACETAMINOPHEN
     Dosage: 10 MILLIGRAM, DOSAGE FORM NOT SPECIFIED
     Route: 065
  159. CETIRIZINE HYDROCHLORIDE AND PSEUDOEPHEDRINE HYDROCHLORIDE [Suspect]
     Active Substance: CETIRIZINE HYDROCHLORIDE\PSEUDOEPHEDRINE HYDROCHLORIDE
     Indication: Rheumatoid arthritis
     Dosage: UNK
     Route: 065
  160. CETIRIZINE HYDROCHLORIDE AND PSEUDOEPHEDRINE HYDROCHLORIDE [Suspect]
     Active Substance: CETIRIZINE HYDROCHLORIDE\PSEUDOEPHEDRINE HYDROCHLORIDE
     Dosage: 10 MILLIGRAM
     Route: 065
  161. KEVZARA [Suspect]
     Active Substance: SARILUMAB
     Indication: Rheumatoid arthritis
     Dosage: UNK
     Route: 065
  162. KEVZARA [Suspect]
     Active Substance: SARILUMAB
     Indication: Product used for unknown indication
  163. STELARA [Suspect]
     Active Substance: USTEKINUMAB
     Indication: Product used for unknown indication
     Dosage: DOSAGE FORM: SOLUTION SUBCUTANEOUS
     Route: 058
  164. STELARA [Suspect]
     Active Substance: USTEKINUMAB
     Dosage: UNK, DOSAGE FORM SOLUTION SUBCUTANEOUS
     Route: 058
  165. TOFACITINIB CITRATE [Suspect]
     Active Substance: TOFACITINIB CITRATE
     Indication: Rheumatoid arthritis
     Dosage: 5 MILLIGRAM
     Route: 065
  166. TOFACITINIB CITRATE [Suspect]
     Active Substance: TOFACITINIB CITRATE
     Dosage: 5 MILLIGRAM, BID (2 EVERY 1 DAYS)
     Route: 065
  167. CHLORAPREP [Suspect]
     Active Substance: CHLORHEXIDINE GLUCONATE\ISOPROPYL ALCOHOL
     Indication: Product used for unknown indication
     Dosage: UNK, DOSAGE FORM NOT SPECIFIED
     Route: 065
  168. CHLORAPREP [Suspect]
     Active Substance: CHLORHEXIDINE GLUCONATE\ISOPROPYL ALCOHOL
     Dosage: UNK DOSAGE FORM REPORTED AS SOLUTION
     Route: 061
  169. CHLORAPREP [Suspect]
     Active Substance: CHLORHEXIDINE GLUCONATE\ISOPROPYL ALCOHOL
     Dosage: UNK, DOSAGE FORM REPORTED AS SOLUTION
     Route: 048
  170. CHLORAPREP [Suspect]
     Active Substance: CHLORHEXIDINE GLUCONATE\ISOPROPYL ALCOHOL
     Dosage: UNK, DOSAGE FORM NOT SPECIFIED
     Route: 002
  171. OXYCODONE HYDROCHLORIDE [Suspect]
     Active Substance: OXYCODONE HYDROCHLORIDE
     Indication: Product used for unknown indication
     Dosage: DOSAGE FORM: NOT SPECIFIED
     Route: 065
  172. OXYCODONE HYDROCHLORIDE [Suspect]
     Active Substance: OXYCODONE HYDROCHLORIDE
     Dosage: DOSAGE FORM: NOT SPECIFIED
     Route: 065
  173. OXYCODONE HYDROCHLORIDE [Suspect]
     Active Substance: OXYCODONE HYDROCHLORIDE
     Dosage: DOSAGE FORM: NOT SPECIFIED
     Route: 065
  174. OXYCODONE HYDROCHLORIDE [Suspect]
     Active Substance: OXYCODONE HYDROCHLORIDE
     Dosage: UNK
     Route: 065
  175. OXYCODONE TEREPHTHALATE [Suspect]
     Active Substance: OXYCODONE TEREPHTHALATE
     Indication: Product used for unknown indication
     Dosage: DOSAGE FORM: NOT SPECIFIED
     Route: 065
  176. OXYCODONE AND ACETAMINOPHEN [Suspect]
     Active Substance: ACETAMINOPHEN\OXYCODONE HYDROCHLORIDE
     Indication: Product used for unknown indication
     Dosage: UNK
     Route: 065
  177. OXYCODONE AND ACETAMINOPHEN [Suspect]
     Active Substance: ACETAMINOPHEN\OXYCODONE HYDROCHLORIDE
     Dosage: UNK
     Route: 065
  178. PERIOGARD [Suspect]
     Active Substance: CHLORHEXIDINE GLUCONATE
     Indication: Product used for unknown indication
     Dosage: UNK
     Route: 002
  179. PERIOGARD [Suspect]
     Active Substance: CHLORHEXIDINE GLUCONATE
     Dosage: UNK
     Route: 061
  180. PERIOGARD [Suspect]
     Active Substance: CHLORHEXIDINE GLUCONATE
     Dosage: UNK
     Route: 065
  181. PERIOGARD [Suspect]
     Active Substance: CHLORHEXIDINE GLUCONATE
     Dosage: UNK, DOSAGE FORM SOLUTION BUCCAL REPORTED AS PERIOGARD ALCOHOL FREE
     Route: 002
  182. SULFAMETHOXAZOLE [Suspect]
     Active Substance: SULFAMETHOXAZOLE
     Indication: Product used for unknown indication
     Dosage: UNK (DOSAGE FORM: NOT SPECIFIED)
     Route: 065
  183. SULFAMETHOXAZOLE [Suspect]
     Active Substance: SULFAMETHOXAZOLE
     Dosage: UNK
     Route: 065
  184. SULFAMETHOXAZOLE [Suspect]
     Active Substance: SULFAMETHOXAZOLE
     Dosage: UNK
     Route: 067
  185. SULFAMETHOXAZOLE AND TRIMETHOPRIM [Suspect]
     Active Substance: SULFAMETHOXAZOLE\TRIMETHOPRIM
     Indication: Product used for unknown indication
     Dosage: DOSAGE FORM: NOT SPECIFIED
     Route: 065
  186. SULFAMETHOXAZOLE AND TRIMETHOPRIM [Suspect]
     Active Substance: SULFAMETHOXAZOLE\TRIMETHOPRIM
     Indication: Rheumatoid arthritis
     Dosage: DOSAGE FORM: NOT SPECIFIED
     Route: 067
  187. CHLORHEXIDINE [Suspect]
     Active Substance: CHLORHEXIDINE
     Indication: Product used for unknown indication
     Dosage: DOSAGE FORM: NOT SPECIFIED
     Route: 048
  188. CHLORHEXIDINE [Suspect]
     Active Substance: CHLORHEXIDINE
     Dosage: DOSAGE FORM: NOT SPECIFIED
     Route: 061
  189. CHLORHEXIDINE [Suspect]
     Active Substance: CHLORHEXIDINE
     Dosage: DOSAGE FORM: NOT SPECIFIED
     Route: 065
  190. CHLORHEXIDINE [Suspect]
     Active Substance: CHLORHEXIDINE
     Dosage: DOSAGE FORM: NOT SPECIFIED
     Route: 065
  191. HYDROCORTISONE ACETATE [Suspect]
     Active Substance: HYDROCORTISONE ACETATE
     Indication: Rheumatoid arthritis
     Dosage: UNK
     Route: 058
  192. HYDROCORTISONE ACETATE [Suspect]
     Active Substance: HYDROCORTISONE ACETATE
     Indication: Product used for unknown indication
     Dosage: UNK
     Route: 061
  193. HYDROCORTISONE ACETATE [Suspect]
     Active Substance: HYDROCORTISONE ACETATE
     Dosage: UNK
     Route: 065
  194. ISOPROPYL ALCOHOL [Suspect]
     Active Substance: ISOPROPYL ALCOHOL
     Dosage: DOSAGE FORM: LIQUID TOPICAL
     Route: 065
  195. PREDNISONE [Suspect]
     Active Substance: PREDNISONE
     Indication: Product used for unknown indication
     Dosage: UNK
     Route: 048
  196. PREDNISONE [Suspect]
     Active Substance: PREDNISONE
     Indication: Rheumatoid arthritis
     Dosage: 7.5 MILLIGRAM
     Route: 048
  197. PREDNISONE [Suspect]
     Active Substance: PREDNISONE
     Dosage: 40 MILLIGRAM
     Route: 065
  198. PREDNISONE [Suspect]
     Active Substance: PREDNISONE
     Dosage: UNK
     Route: 065
  199. SULFASALAZINE [Suspect]
     Active Substance: SULFASALAZINE
     Indication: Rheumatoid arthritis
     Dosage: DOSAGE FORM: NOT SPECIFIED
     Route: 065
  200. SULFASALAZINE [Suspect]
     Active Substance: SULFASALAZINE
     Indication: Product used for unknown indication
     Dosage: 2000 MILLIGRAM/ DOSAGE FORM: NOT SPECIFIED
     Route: 048
  201. SULFASALAZINE [Suspect]
     Active Substance: SULFASALAZINE
     Dosage: 1000 MILLIGRAM, BID/ DOSAGE FORM: NOT SPECIFIED
     Route: 048
  202. SULFASALAZINE [Suspect]
     Active Substance: SULFASALAZINE
     Dosage: 500 MILLIGRAM/ DOSAGE FORM: NOT SPECIFIED
     Route: 048
  203. SULFASALAZINE [Suspect]
     Active Substance: SULFASALAZINE
     Dosage: DOSAGE FORM: NOT SPECIFIED
     Route: 065
  204. SULFASALAZINE [Suspect]
     Active Substance: SULFASALAZINE
     Dosage: DOSAGE FORM: SPRAY (NOT INHALATION)
     Route: 065
  205. SULFASALAZINE [Suspect]
     Active Substance: SULFASALAZINE
     Dosage: DOSAGE FORM: SPRAY (NOT INHALATION)
     Route: 048
  206. SULFASALAZINE [Suspect]
     Active Substance: SULFASALAZINE
     Dosage: DOSAGE FORM: SPRAY (NOT INHALATION)
     Route: 065
  207. SULFASALAZINE [Suspect]
     Active Substance: SULFASALAZINE
     Dosage: DOSAGE FORM: SPRAY (NOT INHALATION)
     Route: 065
  208. SULFASALAZINE [Suspect]
     Active Substance: SULFASALAZINE
     Dosage: DOSAGE FORM: NOT SPECIFIED
     Route: 048
  209. SULFASALAZINE [Suspect]
     Active Substance: SULFASALAZINE
     Dosage: 2000 MILLIGRAM/ DOSAGE FORM: NOT SPECIFIED; ROUTEL OCCLUSIVE DRESSING TECHNIQUE
     Route: 065
  210. SULFASALAZINE [Suspect]
     Active Substance: SULFASALAZINE
     Dosage: 2000 MILLIGRAM 1 EVERY 1 DAYS DOSAGE FORM: NOT SPECIFIED
     Route: 048
  211. SULFASALAZINE [Suspect]
     Active Substance: SULFASALAZINE
     Dosage: 2000 MILLIGRAM 1 EVERY 1 DAYS DOSAGE FORM: NOT SPECIFIED ROUTE OF ADMINISTRATION REPORTED AS OCCLUSI
     Route: 065
  212. ACETAMINOPHEN\CAFFEINE\CODEINE PHOSPHATE [Suspect]
     Active Substance: ACETAMINOPHEN\CAFFEINE\CODEINE PHOSPHATE
     Indication: Product used for unknown indication
     Dosage: DOSAGE FORM: NOT SPECIFIED
     Route: 065
  213. CHLORHEXIDINE [Suspect]
     Active Substance: CHLORHEXIDINE
     Indication: Product used for unknown indication
     Dosage: UNK
     Route: 065
  214. CHLORHEXIDINE [Suspect]
     Active Substance: CHLORHEXIDINE
     Dosage: UNK
     Route: 048
  215. CHLORHEXIDINE [Suspect]
     Active Substance: CHLORHEXIDINE
     Dosage: UNK
     Route: 061
  216. APREPITANT [Suspect]
     Active Substance: APREPITANT
     Indication: Product used for unknown indication
     Dosage: UNK
     Route: 065
  217. ERELZI [Suspect]
     Active Substance: ETANERCEPT-SZZS
     Indication: Product used for unknown indication
     Dosage: UNK, DOSAGE FORM NOT SPECIFIED
     Route: 065
  218. DICLOFENAC POTASSIUM [Suspect]
     Active Substance: DICLOFENAC POTASSIUM
     Indication: Product used for unknown indication
     Dosage: UNK
     Route: 048
  219. DICLOFENAC POTASSIUM [Suspect]
     Active Substance: DICLOFENAC POTASSIUM
     Dosage: UNK
     Route: 065
  220. TRIMIPRAMINE [Suspect]
     Active Substance: TRIMIPRAMINE
     Indication: Product used for unknown indication
     Dosage: UNK, DOSAGE FORM: NOT SPECIFIED
     Route: 065
  221. EMEND [Suspect]
     Active Substance: APREPITANT
     Indication: Product used for unknown indication
     Dosage: UNK
     Route: 065
  222. EMEND [Suspect]
     Active Substance: APREPITANT
     Dosage: UNK
     Route: 042
  223. OXYCODONE AND ACETAMINOPHEN [Suspect]
     Active Substance: ACETAMINOPHEN\OXYCODONE HYDROCHLORIDE
     Indication: Product used for unknown indication
     Dosage: UNK
     Route: 065
  224. CETIRIZINE HYDROCHLORIDE\PSEUDOEPHEDRINE HYDROCHLORIDE [Suspect]
     Active Substance: CETIRIZINE HYDROCHLORIDE\PSEUDOEPHEDRINE HYDROCHLORIDE
     Indication: Rheumatoid arthritis
     Dosage: 10 MILLIGRAM
     Route: 065
  225. PREDNISOLONE [Suspect]
     Active Substance: PREDNISOLONE
     Indication: Product used for unknown indication
     Dosage: UNK, DOSAGE FORM: NOT SPECIFIED
     Route: 065
  226. MARVELON [Concomitant]
     Active Substance: DESOGESTREL\ETHINYL ESTRADIOL
     Indication: Product used for unknown indication
     Dosage: UNK
     Route: 065
  227. MARVELON [Concomitant]
     Active Substance: DESOGESTREL\ETHINYL ESTRADIOL
     Dosage: UNK
     Route: 065
  228. ACETAMINOPHEN [Concomitant]
     Active Substance: ACETAMINOPHEN
     Indication: Product used for unknown indication
     Dosage: DOSAGE FORM: NOT SPECIFIED
     Route: 065
  229. SULFASALAZINE [Concomitant]
     Active Substance: SULFASALAZINE
     Indication: Product used for unknown indication
     Dosage: DOSAGE FORM; NOT SPECIFIED
     Route: 065
  230. ACETAMINOPHEN AND CODEINE [Concomitant]
     Active Substance: ACETAMINOPHEN\CODEINE PHOSPHATE
     Indication: Product used for unknown indication
     Dosage: UNK
     Route: 065
  231. CETIRIZINE [Concomitant]
     Active Substance: CETIRIZINE HYDROCHLORIDE
     Dosage: 10 MILLIGRAM
     Route: 065
  232. IBUPROFEN [Concomitant]
     Active Substance: IBUPROFEN
     Indication: Product used for unknown indication
     Dosage: DOSAGE FORM: NOT SPECIFIED
     Route: 065
  233. PANTOPRAZOLE SODIUM [Concomitant]
     Active Substance: PANTOPRAZOLE SODIUM
     Indication: Product used for unknown indication
     Dosage: DOSAGE FORM: TABLET, ENTERIC COATED
     Route: 065
  234. PANTOPRAZOLE SODIUM [Concomitant]
     Active Substance: PANTOPRAZOLE SODIUM
     Dosage: UNK
     Route: 065
  235. TYLENOL WITH CODEINE [Concomitant]
     Active Substance: ACETAMINOPHEN\CODEINE PHOSPHATE
     Indication: Product used for unknown indication
     Dosage: DOSAGE FORM: NOT SPECIFIED
     Route: 065
  236. ZOPICLONE [Concomitant]
     Active Substance: ZOPICLONE
     Dosage: UNK
     Route: 065
  237. TYLENOL [Concomitant]
     Active Substance: ACETAMINOPHEN
     Indication: Product used for unknown indication
     Dosage: DOSAGE FORM: NOT SPECIFIED
     Route: 065
  238. ACETAMINOPHEN [Concomitant]
     Active Substance: ACETAMINOPHEN
     Indication: Product used for unknown indication
     Dosage: UNK DOSAGE FORM NOT SPECIFIED
     Route: 065
  239. PANTOPRAZOLE SODIUM [Concomitant]
     Active Substance: PANTOPRAZOLE SODIUM
     Indication: Product used for unknown indication
     Dosage: DOSAGE FORM : NOT SPECIFIED
     Route: 065
  240. PANTOPRAZOLE SODIUM [Concomitant]
     Active Substance: PANTOPRAZOLE SODIUM
     Dosage: UNK
     Route: 065
  241. ATIVAN [Concomitant]
     Active Substance: LORAZEPAM
     Dosage: UNK, DOSAGE FORM: NOT SPECIFIED
     Route: 065
  242. CAFFEINE [Concomitant]
     Active Substance: CAFFEINE
     Indication: Product used for unknown indication
     Dosage: UNK, DOSAGE FORM: NOT SPECIFIED
     Route: 065
  243. CODEINE [Concomitant]
     Active Substance: CODEINE
     Indication: Product used for unknown indication
     Dosage: UNK
     Route: 065
  244. ERGOCALCIFEROL [Concomitant]
     Active Substance: ERGOCALCIFEROL
     Indication: Product used for unknown indication
     Dosage: UNK
     Route: 065
  245. GLUCOSAMINE [Concomitant]
     Active Substance: GLUCOSAMINE
     Indication: Product used for unknown indication
     Dosage: UNK, DOSAGE FORM: NOT SPECIFIED
     Route: 065
  246. LANSOPRAZOLE [Concomitant]
     Active Substance: LANSOPRAZOLE
     Indication: Product used for unknown indication
     Dosage: UNK
     Route: 065
  247. LANSOPRAZOLE [Concomitant]
     Active Substance: LANSOPRAZOLE
     Dosage: UNK
     Route: 065
  248. LORAZEPAM [Concomitant]
     Active Substance: LORAZEPAM
     Indication: Product used for unknown indication
     Dosage: UNK, DOSAGE FORM: NOT SPECIFIED
     Route: 065
  249. FISH OIL [Concomitant]
     Active Substance: FISH OIL
     Indication: Product used for unknown indication
     Dosage: UNK
     Route: 065
  250. VITAMIN C [Concomitant]
     Active Substance: ASCORBIC ACID
     Indication: Product used for unknown indication
     Dosage: UNK
     Route: 065
  251. VITAMIN C [Concomitant]
     Active Substance: ASCORBIC ACID
     Dosage: UNK, DOSAGE FORM NOT SPECIFIED
     Route: 065
  252. ACETAMINOPHEN\CAFFEINE\CODEINE PHOSPHATE [Concomitant]
     Active Substance: ACETAMINOPHEN\CAFFEINE\CODEINE PHOSPHATE
     Indication: Product used for unknown indication
     Dosage: UNK
     Route: 065
  253. DESOGESTREL\ETHINYL ESTRADIOL [Concomitant]
     Active Substance: DESOGESTREL\ETHINYL ESTRADIOL
     Indication: Product used for unknown indication
     Dosage: UNK
     Route: 065

REACTIONS (100)
  - Abdominal discomfort [Not Recovered/Not Resolved]
  - Alopecia [Not Recovered/Not Resolved]
  - Anti-cyclic citrullinated peptide antibody positive [Not Recovered/Not Resolved]
  - Arthropathy [Not Recovered/Not Resolved]
  - Contraindicated product administered [Not Recovered/Not Resolved]
  - Discomfort [Not Recovered/Not Resolved]
  - Drug ineffective [Not Recovered/Not Resolved]
  - Drug intolerance [Not Recovered/Not Resolved]
  - Duodenal ulcer perforation [Not Recovered/Not Resolved]
  - Fatigue [Not Recovered/Not Resolved]
  - Glossodynia [Not Recovered/Not Resolved]
  - Hand deformity [Not Recovered/Not Resolved]
  - Helicobacter infection [Not Recovered/Not Resolved]
  - Hepatic enzyme increased [Not Recovered/Not Resolved]
  - Hypersensitivity [Not Recovered/Not Resolved]
  - Infusion related reaction [Not Recovered/Not Resolved]
  - Maternal exposure during pregnancy [Not Recovered/Not Resolved]
  - Pain [Not Recovered/Not Resolved]
  - Pemphigus [Not Recovered/Not Resolved]
  - Pericarditis [Not Recovered/Not Resolved]
  - Rash [Not Recovered/Not Resolved]
  - Rheumatoid arthritis [Not Recovered/Not Resolved]
  - Swelling [Not Recovered/Not Resolved]
  - Synovitis [Not Recovered/Not Resolved]
  - Systemic lupus erythematosus [Not Recovered/Not Resolved]
  - Wound [Not Recovered/Not Resolved]
  - Blister [Not Recovered/Not Resolved]
  - Condition aggravated [Not Recovered/Not Resolved]
  - General physical health deterioration [Not Recovered/Not Resolved]
  - Injury [Not Recovered/Not Resolved]
  - Intentional product use issue [Not Recovered/Not Resolved]
  - Joint swelling [Not Recovered/Not Resolved]
  - Product use issue [Not Recovered/Not Resolved]
  - Treatment failure [Not Recovered/Not Resolved]
  - Arthralgia [Not Recovered/Not Resolved]
  - Contusion [Not Recovered/Not Resolved]
  - Dyspnoea [Not Recovered/Not Resolved]
  - Folliculitis [Not Recovered/Not Resolved]
  - Ill-defined disorder [Not Recovered/Not Resolved]
  - Impaired healing [Not Recovered/Not Resolved]
  - Irritable bowel syndrome [Not Recovered/Not Resolved]
  - Lower respiratory tract infection [Not Recovered/Not Resolved]
  - Muscle injury [Not Recovered/Not Resolved]
  - Nasopharyngitis [Not Recovered/Not Resolved]
  - Peripheral swelling [Not Recovered/Not Resolved]
  - Pruritus [Not Recovered/Not Resolved]
  - Pyrexia [Not Recovered/Not Resolved]
  - Sinusitis [Not Recovered/Not Resolved]
  - Sleep disorder due to general medical condition, insomnia type [Not Recovered/Not Resolved]
  - Stomatitis [Not Recovered/Not Resolved]
  - Swelling [Not Recovered/Not Resolved]
  - Rheumatoid arthritis [Not Recovered/Not Resolved]
  - Confusional state [Not Recovered/Not Resolved]
  - Gastrointestinal disorder [Not Recovered/Not Resolved]
  - Infection [Not Recovered/Not Resolved]
  - Therapeutic product effect decreased [Not Recovered/Not Resolved]
  - Weight increased [Not Recovered/Not Resolved]
  - Maternal exposure timing unspecified [Not Recovered/Not Resolved]
  - Medication error [Not Recovered/Not Resolved]
  - Off label use [Not Recovered/Not Resolved]
  - Asthenia [Unknown]
  - Asthma [Not Recovered/Not Resolved]
  - Autoimmune disorder [Not Recovered/Not Resolved]
  - Blood cholesterol increased [Unknown]
  - Bursitis [Unknown]
  - C-reactive protein abnormal [Unknown]
  - Chest pain [Not Recovered/Not Resolved]
  - Deep vein thrombosis postoperative [Not Recovered/Not Resolved]
  - Depression [Unknown]
  - Drug hypersensitivity [Not Recovered/Not Resolved]
  - Dry mouth [Unknown]
  - Facet joint syndrome [Unknown]
  - Gait inability [Not Recovered/Not Resolved]
  - Headache [Unknown]
  - Hypertension [Unknown]
  - Inflammation [Unknown]
  - Joint range of motion decreased [Unknown]
  - Lip dry [Unknown]
  - Liver disorder [Unknown]
  - Lower limb fracture [Not Recovered/Not Resolved]
  - Lung disorder [Unknown]
  - Muscle spasms [Unknown]
  - Musculoskeletal pain [Not Recovered/Not Resolved]
  - Musculoskeletal stiffness [Not Recovered/Not Resolved]
  - Night sweats [Unknown]
  - Obesity [Unknown]
  - Oedema [Unknown]
  - Oedema peripheral [Unknown]
  - Osteoarthritis [Unknown]
  - Pain in extremity [Unknown]
  - Paraesthesia [Unknown]
  - Peripheral venous disease [Unknown]
  - Rheumatoid factor positive [Not Recovered/Not Resolved]
  - Road traffic accident [Not Recovered/Not Resolved]
  - Sleep disorder [Unknown]
  - Therapy non-responder [Not Recovered/Not Resolved]
  - Urticaria [Not Recovered/Not Resolved]
  - Anxiety [Not Recovered/Not Resolved]
  - Product use in unapproved indication [Not Recovered/Not Resolved]
  - C-reactive protein [Not Recovered/Not Resolved]
